FAERS Safety Report 15933173 (Version 1)
Quarter: 2019Q1

REPORT INFORMATION
  Report Type: Spontaneous
  Country: US (occurrence: US)
  Receive Date: 20190207
  Receipt Date: 20190207
  Transmission Date: 20190417
  Serious: Yes (Hospitalization, Other)
  Sender: FDA-Public Use
  Company Number: US-OTSUKA-2018_024085

PATIENT
  Sex: Female

DRUGS (4)
  1. ABILIFY [Suspect]
     Active Substance: ARIPIPRAZOLE
     Indication: ANXIETY
     Dosage: 15 MG, QD
     Route: 065
     Dates: start: 2004
  2. ABILIFY [Suspect]
     Active Substance: ARIPIPRAZOLE
     Indication: POST-TRAUMATIC STRESS DISORDER
  3. ABILIFY [Suspect]
     Active Substance: ARIPIPRAZOLE
     Indication: IMPULSE-CONTROL DISORDER
  4. ABILIFY [Suspect]
     Active Substance: ARIPIPRAZOLE
     Indication: EATING DISORDER
     Dosage: 30 MG, QD
     Route: 065
     Dates: end: 2005

REACTIONS (13)
  - Impulse-control disorder [Unknown]
  - Mental disorder [Unknown]
  - Shoplifting [Unknown]
  - Obsessive-compulsive disorder [Recovered/Resolved]
  - Gambling disorder [Recovered/Resolved]
  - Suicidal ideation [Unknown]
  - Suicide attempt [Unknown]
  - Homeless [Unknown]
  - Compulsive shopping [Recovered/Resolved]
  - Theft [Unknown]
  - Eating disorder [Unknown]
  - Divorced [Unknown]
  - Economic problem [Unknown]

NARRATIVE: CASE EVENT DATE: 2004
